FAERS Safety Report 24534539 (Version 2)
Quarter: 2024Q4

REPORT INFORMATION
  Report Type: Spontaneous
  Country: US (occurrence: US)
  Receive Date: 20241022
  Receipt Date: 20241230
  Transmission Date: 20250115
  Serious: Yes (Hospitalization, Other)
  Sender: BRISTOL-MYERS SQUIBB COMPANY
  Company Number: US-BRISTOL-MYERS SQUIBB COMPANY-2024-162073

PATIENT
  Age: 62 Year
  Sex: Male
  Weight: 72.12 kg

DRUGS (1)
  1. REVLIMID [Suspect]
     Active Substance: LENALIDOMIDE
     Indication: Plasma cell myeloma
     Dosage: 5MG CAPSULE DAILY FOR 14 DAYS THEN 7 DAYS OF
     Route: 048

REACTIONS (2)
  - Renal failure [Recovering/Resolving]
  - Taste disorder [Not Recovered/Not Resolved]
